FAERS Safety Report 9861389 (Version 1)
Quarter: 2014Q1

REPORT INFORMATION
  Report Type: Spontaneous
  Country: US (occurrence: None)
  Receive Date: 20140131
  Receipt Date: 20140131
  Transmission Date: 20141002
  Serious: Yes (Other)
  Sender: FDA-Public Use
  Company Number: None

PATIENT
  Age: 78 Year
  Sex: Female
  Weight: 74.84 kg

DRUGS (3)
  1. LEVOFLOXACIN [Suspect]
     Indication: COUGH
     Dosage: 500?7 PILLS?ONE TAB A DAY?BY MOUTH
     Route: 048
     Dates: start: 20140106, end: 20140110
  2. LEVOFLOXACIN [Suspect]
     Indication: NASOPHARYNGITIS
     Dosage: 500?7 PILLS?ONE TAB A DAY?BY MOUTH
     Route: 048
     Dates: start: 20140106, end: 20140110
  3. LEVOFLOXACIN [Suspect]
     Indication: SINUSITIS
     Dosage: 500?7 PILLS?ONE TAB A DAY?BY MOUTH
     Route: 048
     Dates: start: 20140106, end: 20140110

REACTIONS (3)
  - Pain in extremity [None]
  - Pain in extremity [None]
  - Gait disturbance [None]
